FAERS Safety Report 24975394 (Version 1)
Quarter: 2025Q1

REPORT INFORMATION
  Report Type: Report from Study
  Country: US (occurrence: US)
  Receive Date: 20250217
  Receipt Date: 20250217
  Transmission Date: 20250409
  Serious: Yes (Other)
  Sender: ABBVIE
  Company Number: US-ABBVIE-6134514

PATIENT
  Age: 88 Year
  Sex: Female

DRUGS (11)
  1. VENCLEXTA [Suspect]
     Active Substance: VENETOCLAX
     Indication: Chronic lymphocytic leukaemia
     Route: 048
     Dates: start: 20250113
  2. FLONASE [Concomitant]
     Active Substance: FLUTICASONE PROPIONATE
     Indication: Product used for unknown indication
  3. VITAMIN B2 [Concomitant]
     Active Substance: RIBOFLAVIN
     Indication: Product used for unknown indication
  4. CEFUROXIME [Concomitant]
     Active Substance: CEFUROXIME
     Indication: Product used for unknown indication
  5. VITAMIN D3 [Concomitant]
     Active Substance: CHOLECALCIFEROL
     Indication: Product used for unknown indication
  6. CALCIUM [Concomitant]
     Active Substance: CALCIUM
     Indication: Product used for unknown indication
  7. MAGNESIUM [Concomitant]
     Active Substance: MAGNESIUM
     Indication: Product used for unknown indication
  8. GAZYVA [Concomitant]
     Active Substance: OBINUTUZUMAB
     Indication: Product used for unknown indication
  9. PRIVIGEN [Concomitant]
     Active Substance: HUMAN IMMUNOGLOBULIN G
     Indication: Product used for unknown indication
  10. LORATADINE [Concomitant]
     Active Substance: LORATADINE
     Indication: Product used for unknown indication
  11. LEVOTHYROXINE [Concomitant]
     Active Substance: LEVOTHYROXINE
     Indication: Product used for unknown indication

REACTIONS (1)
  - Limb injury [Unknown]

NARRATIVE: CASE EVENT DATE: 20250101
